FAERS Safety Report 18027061 (Version 1)
Quarter: 2020Q3

REPORT INFORMATION
  Report Type: Spontaneous
  Country: SE (occurrence: SE)
  Receive Date: 20200716
  Receipt Date: 20200716
  Transmission Date: 20201103
  Serious: Yes (Other)
  Sender: FDA-Public Use
  Company Number: SE-ROCHE-2643095

PATIENT
  Age: 65 Year
  Sex: Male

DRUGS (5)
  1. IRINOTECAN [Concomitant]
     Active Substance: IRINOTECAN
  2. FELODIPINE. [Concomitant]
     Active Substance: FELODIPINE
  3. ENALAPRIL [Concomitant]
     Active Substance: ENALAPRIL
  4. AVASTIN [Suspect]
     Active Substance: BEVACIZUMAB
     Indication: APPENDIX CANCER
  5. AVASTIN [Suspect]
     Active Substance: BEVACIZUMAB
     Indication: METASTASIS
     Dosage: ON 07/FEB/2020, RECEIVED MOST RECENT DOSE OF BEVACIZUMAB
     Route: 042
     Dates: start: 20190121

REACTIONS (1)
  - Retinopathy hypertensive [Recovered/Resolved]

NARRATIVE: CASE EVENT DATE: 20200116
